FAERS Safety Report 8220146-X (Version None)
Quarter: 2012Q1

REPORT INFORMATION
  Report Type: 
  Country: None (occurrence: None)
  Receive Date: 20120320
  Receipt Date: 20120309
  Transmission Date: 20120608
  Serious: Yes (Hospitalization)
  Sender: FDA-Public Use
  Company Number: US-BAYER-2011-099684

PATIENT
  Age: 20 Year
  Sex: Female
  Weight: 50 kg

DRUGS (7)
  1. NITROFURANTOIN [Concomitant]
     Dosage: UNK MG, UNK
     Route: 048
  2. ALBUTEROL [Concomitant]
  3. YAZ [Suspect]
     Indication: CONTRACEPTION
     Dosage: UNK
     Route: 048
     Dates: start: 20071101, end: 20100101
  4. ACIPHEX [Concomitant]
     Dosage: UNK UNK, QD
     Route: 048
  5. AVELOX [Concomitant]
     Dosage: 400 MG, UNK
     Route: 048
  6. YAZ [Suspect]
     Indication: PREMENSTRUAL SYNDROME
  7. SARAFEM [Concomitant]
     Dosage: UNK UNK, QD
     Route: 048

REACTIONS (6)
  - GALLBLADDER DISORDER [None]
  - ABDOMINAL PAIN [None]
  - INJURY [None]
  - PAIN [None]
  - EMOTIONAL DISTRESS [None]
  - CHOLECYSTITIS CHRONIC [None]
